FAERS Safety Report 26165407 (Version 1)
Quarter: 2025Q4

REPORT INFORMATION
  Report Type: Spontaneous
  Country: US (occurrence: US)
  Receive Date: 20251216
  Receipt Date: 20251216
  Transmission Date: 20260118
  Serious: Yes (Other)
  Sender: PFIZER
  Company Number: US-PFIZER INC-PV202500145431

PATIENT
  Age: 61 Year
  Sex: Male

DRUGS (2)
  1. BEVACIZUMAB [Suspect]
     Active Substance: BEVACIZUMAB
     Indication: Glioblastoma multiforme
     Dosage: UNK
  2. OSIMERTINIB [Concomitant]
     Active Substance: OSIMERTINIB
     Indication: Glioblastoma multiforme
     Dosage: 80 MG, DAILY
     Dates: start: 202502

REACTIONS (1)
  - Ischaemic stroke [Unknown]
